FAERS Safety Report 15536878 (Version 1)
Quarter: 2018Q4

REPORT INFORMATION
  Report Type: Spontaneous
  Country: US (occurrence: US)
  Receive Date: 20181022
  Receipt Date: 20181022
  Transmission Date: 20190205
  Serious: No
  Sender: FDA-Public Use
  Company Number: US-PFIZER INC-2016576964

PATIENT
  Sex: Male
  Weight: 24 kg

DRUGS (2)
  1. GENOTROPIN [Suspect]
     Active Substance: SOMATROPIN
     Indication: GROWTH FAILURE
     Dosage: 0.7 MG, 1X/DAY
     Route: 058
     Dates: start: 2011, end: 201311
  2. GENOTROPIN [Suspect]
     Active Substance: SOMATROPIN
     Dosage: 1.6 MG, DAILY
     Dates: start: 20110101

REACTIONS (1)
  - Increased appetite [Recovered/Resolved]

NARRATIVE: CASE EVENT DATE: 201311
